FAERS Safety Report 21010455 (Version 1)
Quarter: 2022Q2

REPORT INFORMATION
  Report Type: Spontaneous
  Country: FR (occurrence: FR)
  Receive Date: 20220627
  Receipt Date: 20220627
  Transmission Date: 20220721
  Serious: Yes (Hospitalization, Other)
  Sender: FDA-Public Use
  Company Number: None

PATIENT
  Age: 88 Year
  Sex: Male

DRUGS (3)
  1. EPLERENONE [Suspect]
     Active Substance: EPLERENONE
     Indication: Product used for unknown indication
     Dosage: 25 MG, 1X/DAY (1 TABLET IN THE MORNING, FOR LONG-TERM)
     Route: 048
     Dates: end: 202202
  2. ENTRESTO [Suspect]
     Active Substance: SACUBITRIL\VALSARTAN
     Dosage: 2 DF, 1X/DAY (1 TABLET IN THE MORNING, 1 TABLET IN THE EVENING, FOR LONG-TERM)
     Route: 048
     Dates: end: 202202
  3. PIRIBEDIL [Suspect]
     Active Substance: PIRIBEDIL
     Indication: Parkinson^s disease
     Dosage: 2 DF, 1X/DAY (1 TABLET IN THE MORNING, 1 TABLET IN THE EVENING)
     Route: 048
     Dates: end: 202202

REACTIONS (2)
  - Acute kidney injury [Recovering/Resolving]
  - Vertigo [Recovering/Resolving]

NARRATIVE: CASE EVENT DATE: 20220222
